FAERS Safety Report 10445541 (Version 1)
Quarter: 2014Q3

REPORT INFORMATION
  Report Type: Spontaneous
  Country: US (occurrence: US)
  Receive Date: 20140910
  Receipt Date: 20140910
  Transmission Date: 20150326
  Serious: Yes (Disabling)
  Sender: FDA-Public Use
  Company Number: US-009507513-1409USA001786

PATIENT
  Age: 56 Year
  Sex: Male

DRUGS (3)
  1. PEGINTRON [Suspect]
     Active Substance: PEGINTERFERON ALFA-2B
     Indication: HEPATITIS C
     Dosage: 120 MICROGRAM, WEEKLY
     Route: 058
     Dates: start: 201408
  2. RIBASPHERE RIBAPAK [Suspect]
     Active Substance: RIBAVIRIN
  3. SOVALDI [Suspect]
     Active Substance: SOFOSBUVIR
     Dosage: UNK

REACTIONS (4)
  - Weight decreased [Recovered/Resolved]
  - Myalgia [Recovered/Resolved]
  - Nausea [Recovered/Resolved]
  - Decreased appetite [Recovered/Resolved]

NARRATIVE: CASE EVENT DATE: 201408
